FAERS Safety Report 21237518 (Version 3)
Quarter: 2022Q4

REPORT INFORMATION
  Report Type: Spontaneous
  Country: US (occurrence: US)
  Receive Date: 20220822
  Receipt Date: 20221011
  Transmission Date: 20230113
  Serious: No
  Sender: FDA-Public Use
  Company Number: US-PFIZER INC-202201070133

PATIENT
  Age: 60 Year
  Sex: Female
  Weight: 85.73 kg

DRUGS (2)
  1. PAXLOVID [Suspect]
     Active Substance: NIRMATRELVIR\RITONAVIR
     Indication: COVID-19 treatment
     Dosage: 3 DF, 2X/DAY ([PF-07321332 300 MG]/[RITONAVIR 100 MG]; 2X/DAY)
     Dates: start: 20220817
  2. CEFDINIR [Concomitant]
     Active Substance: CEFDINIR
     Indication: Ear infection
     Dosage: 300 MG

REACTIONS (2)
  - Product taste abnormal [Unknown]
  - Dysgeusia [Recovered/Resolved]

NARRATIVE: CASE EVENT DATE: 20220817
